FAERS Safety Report 6110271-1 (Version None)
Quarter: 2009Q1

REPORT INFORMATION
  Report Type: 
  Country: None (occurrence: None)
  Receive Date: 20090310
  Receipt Date: 20090303
  Transmission Date: 20090719
  Serious: Yes (Other)
  Sender: FDA-Public Use
  Company Number: DE-WYE-G03248709

PATIENT
  Age: 73 Year
  Sex: Male
  Weight: 101.6 kg

DRUGS (17)
  1. VENLAFAXINE HCL [Suspect]
     Indication: DEPRESSION
     Route: 048
     Dates: start: 20080216, end: 20080219
  2. VENLAFAXINE HCL [Interacting]
     Route: 048
     Dates: start: 20080220, end: 20080224
  3. VENLAFAXINE HCL [Interacting]
     Route: 048
     Dates: start: 20080225, end: 20080227
  4. VENLAFAXINE HCL [Interacting]
     Route: 048
     Dates: start: 20080228, end: 20080228
  5. VENLAFAXINE HCL [Interacting]
     Route: 048
     Dates: start: 20080101
  6. VALORON N [Concomitant]
     Route: 048
     Dates: end: 20080215
  7. VALORON N [Concomitant]
     Dosage: 2-3 MG PER DAY
     Route: 048
     Dates: start: 20080219, end: 20080226
  8. VALORON N [Concomitant]
     Route: 048
     Dates: start: 20080227, end: 20080305
  9. MARCUMAR [Concomitant]
     Dosage: ACCORDING TO DETERMINED QUICK VALUE
     Route: 048
  10. HYDROCHLOROTHIAZIDE [Concomitant]
     Route: 048
  11. NEXIUM [Concomitant]
     Route: 048
     Dates: start: 20080220, end: 20080225
  12. SEROQUEL [Interacting]
     Indication: DEPRESSION
     Route: 048
     Dates: start: 20080215, end: 20080215
  13. SEROQUEL [Interacting]
     Route: 048
     Dates: start: 20080216, end: 20080221
  14. SEROQUEL [Interacting]
     Route: 048
     Dates: start: 20080222, end: 20080224
  15. SEROQUEL [Interacting]
     Route: 048
     Dates: start: 20080225, end: 20080225
  16. SEROQUEL [Interacting]
     Route: 048
     Dates: start: 20080226, end: 20080226
  17. BELOC ZOK [Concomitant]
     Route: 048

REACTIONS (2)
  - DRUG INTERACTION [None]
  - URINARY RETENTION [None]
